FAERS Safety Report 20166280 (Version 1)
Quarter: 2021Q4

REPORT INFORMATION
  Report Type: Report from Study
  Country: GB (occurrence: GB)
  Receive Date: 20211209
  Receipt Date: 20211209
  Transmission Date: 20220303
  Serious: Yes (Life-Threatening, Hospitalization)
  Sender: FDA-Public Use
  Company Number: GB-GILEAD-2021-0558189

PATIENT
  Age: 71 Year
  Sex: Male
  Weight: 75.6 kg

DRUGS (4)
  1. IDELALISIB [Suspect]
     Active Substance: IDELALISIB
     Indication: Follicular lymphoma
     Dosage: 150 MG, BID, CYCLE 34
     Route: 048
     Dates: start: 20210916, end: 20211018
  2. ACYCLOVIR [Concomitant]
     Active Substance: ACYCLOVIR
     Indication: Prophylaxis
     Dosage: 200 MG, BID
     Route: 048
     Dates: start: 20190205
  3. COTRIMOXAZOLE [Concomitant]
     Active Substance: SULFAMETHOXAZOLE\TRIMETHOPRIM
     Indication: Prophylaxis
     Dosage: 480 MG OD MON/WED/FRI
     Route: 048
     Dates: start: 20190205
  4. GAMMANORM [Concomitant]
     Active Substance: HUMAN IMMUNOGLOBULIN G
     Indication: Hypogammaglobulinaemia
     Dosage: 10 G, Q1WK
     Route: 058
     Dates: start: 20170801

REACTIONS (1)
  - Colitis [Recovered/Resolved]

NARRATIVE: CASE EVENT DATE: 20211018
